FAERS Safety Report 25738331 (Version 1)
Quarter: 2025Q3

REPORT INFORMATION
  Report Type: Spontaneous
  Country: EU (occurrence: EU)
  Receive Date: 20250829
  Receipt Date: 20250829
  Transmission Date: 20251021
  Serious: Yes (Other)
  Sender: CELLTRION
  Company Number: EU-AMGEN-DEUSP2025152862

PATIENT

DRUGS (2)
  1. ADALIMUMAB [Suspect]
     Active Substance: ADALIMUMAB
     Indication: Hidradenitis
     Route: 065
  2. ADALIMUMAB [Suspect]
     Active Substance: ADALIMUMAB

REACTIONS (6)
  - Flap necrosis [Recovering/Resolving]
  - Lymphoedema [Recovering/Resolving]
  - Mobility decreased [Recovering/Resolving]
  - Quality of life decreased [Recovering/Resolving]
  - Depression [Unknown]
  - Treatment failure [Unknown]
